FAERS Safety Report 6418590-6 (Version None)
Quarter: 2009Q4

REPORT INFORMATION
  Report Type: 
  Country: None (occurrence: None)
  Receive Date: 20091028
  Receipt Date: 20091015
  Transmission Date: 20100525
  Serious: Yes (Hospitalization)
  Sender: FDA-Public Use
  Company Number: PHEH2009US14105

PATIENT

DRUGS (1)
  1. RECLAST [Suspect]
     Dosage: 5 MG, ONCE/SINGLE

REACTIONS (3)
  - ACUTE HEPATIC FAILURE [None]
  - HEPATITIS [None]
  - JAUNDICE CHOLESTATIC [None]
